FAERS Safety Report 4691720-2 (Version None)
Quarter: 2005Q2

REPORT INFORMATION
  Report Type: 
  Country: None (occurrence: None)
  Receive Date: 20050616
  Receipt Date: 20050607
  Transmission Date: 20051028
  Serious: Yes (Death, Life-Threatening, Hospitalization)
  Sender: FDA-Public Use
  Company Number: 200511481EU

PATIENT
  Sex: Female

DRUGS (3)
  1. RIFOLDIN [Suspect]
     Indication: PULMONARY TUBERCULOSIS
     Dates: start: 20050304, end: 20050328
  2. ETHAMBUTOL HCL [Concomitant]
     Indication: PULMONARY TUBERCULOSIS
     Route: 048
     Dates: start: 20050304, end: 20050309
  3. PYRAZINAMIDE [Concomitant]
     Indication: PULMONARY TUBERCULOSIS
     Route: 048
     Dates: start: 20050304, end: 20050309

REACTIONS (9)
  - ANAEMIA [None]
  - CEREBRAL HAEMORRHAGE [None]
  - CIRCULATORY COLLAPSE [None]
  - CONFUSIONAL STATE [None]
  - DEATH [None]
  - DIZZINESS [None]
  - INTRACRANIAL PRESSURE INCREASED [None]
  - MUSCLE SPASMS [None]
  - THROMBOCYTOPENIA [None]
